FAERS Safety Report 6582323-3 (Version None)
Quarter: 2010Q1

REPORT INFORMATION
  Report Type: 
  Country: None (occurrence: None)
  Receive Date: 20100212
  Receipt Date: 20100212
  Transmission Date: 20100710
  Serious: Yes (Hospitalization)
  Sender: FDA-Public Use
  Company Number: None

PATIENT
  Age: 84 Year
  Sex: Male

DRUGS (1)
  1. CIPROFLOXACIN [Suspect]
     Indication: URINARY TRACT INFECTION
     Dosage: 250 MG EVERY DAY PO
     Route: 048
     Dates: start: 20091027, end: 20091102

REACTIONS (5)
  - ERYTHEMA [None]
  - PAIN [None]
  - RASH [None]
  - SKIN LESION [None]
  - SKIN ULCER [None]
